FAERS Safety Report 8839643 (Version 2)
Quarter: 2012Q4

REPORT INFORMATION
  Report Type: 
  Country: DK (occurrence: DK)
  Receive Date: 20121015
  Receipt Date: 20121127
  Transmission Date: 20130627
  Serious: Yes (Life-Threatening)
  Sender: FDA-Public Use
  Company Number: DK-JNJFOC-20121005467

PATIENT
  Age: 19 Year
  Sex: Male

DRUGS (12)
  1. DOXORUBICIN [Suspect]
     Indication: EWING^S SARCOMA
     Dosage: thrice, repeated in 6 cycles
     Route: 042
  2. DOXORUBICIN [Suspect]
     Indication: EWING^S SARCOMA
     Dosage: thrice, repeated in 6 cycles
     Route: 065
  3. VINCRISTINE [Suspect]
     Indication: EWING^S SARCOMA
     Dosage: repeated in 6 cycles
     Route: 065
  4. VINCRISTINE [Suspect]
     Indication: EWING^S SARCOMA
     Dosage: repeated in 4 cycles
     Route: 065
  5. VINCRISTINE [Suspect]
     Indication: EWING^S SARCOMA
     Dosage: 1 cycles
     Route: 065
  6. IFOSFAMIDE [Suspect]
     Indication: EWING^S SARCOMA
     Dosage: repeated in 6 cycles
     Route: 065
  7. IFOSFAMIDE [Suspect]
     Indication: EWING^S SARCOMA
     Dosage: 1 cycles
     Route: 065
  8. IFOSFAMIDE [Suspect]
     Indication: EWING^S SARCOMA
     Dosage: repeated in 4 cycles
     Route: 065
  9. ETOPOSIDE [Suspect]
     Indication: EWING^S SARCOMA
     Dosage: thrice, repeated in 6 cycles
     Route: 065
  10. ACTINOMYCIN D [Suspect]
     Indication: EWING^S SARCOMA
     Dosage: repeated in 4 cycles
     Route: 065
  11. RADIOTHERAPY [Suspect]
     Indication: EWING^S SARCOMA
     Dosage: 30 fractions
     Route: 065
  12. CO-ENZYME Q10 [Concomitant]
     Indication: SUPPLEMENTATION THERAPY
     Route: 065

REACTIONS (2)
  - Cardiac failure [Recovered/Resolved]
  - Off label use [Not Recovered/Not Resolved]
